FAERS Safety Report 24292302 (Version 1)
Quarter: 2024Q3

REPORT INFORMATION
  Report Type: Report from Study
  Country: KR (occurrence: KR)
  Receive Date: 20240906
  Receipt Date: 20240906
  Transmission Date: 20241017
  Serious: Yes (Hospitalization)
  Sender: GILEAD
  Company Number: KR-GILEAD-2023-0643621

PATIENT
  Sex: Female
  Weight: 68 kg

DRUGS (11)
  1. SOFOSBUVIR\VELPATASVIR [Suspect]
     Active Substance: SOFOSBUVIR\VELPATASVIR
     Indication: Hepatitis C
     Dosage: 1 DOSAGE FORM, QD 400/100 MG
     Route: 048
     Dates: start: 20230814, end: 20230912
  2. RIBAVIRIN [Suspect]
     Active Substance: RIBAVIRIN
     Indication: Hepatitis C
     Dosage: 100 MG, BID
     Route: 048
     Dates: start: 20230814, end: 20230912
  3. HEPACOEN [Concomitant]
     Indication: Hepatic cirrhosis
     Dosage: UNK
     Dates: start: 20230711
  4. DIETARY SUPPLEMENT\HERBALS\MILK THISTLE [Concomitant]
     Active Substance: MILK THISTLE
     Indication: Hepatic cirrhosis
     Dosage: UNK
     Dates: start: 20230711
  5. LIVACT [AMINO ACIDS NOS] [Concomitant]
     Indication: Hepatic cirrhosis
     Dosage: UNK
     Dates: start: 20230711
  6. CEFTRIAXONE [Concomitant]
     Active Substance: CEFTRIAXONE\CEFTRIAXONE SODIUM
     Indication: Pyrexia
     Dosage: UNK
     Dates: start: 20230707, end: 20230717
  7. X PAIN SEMI [Concomitant]
     Indication: Hepatic cirrhosis
     Dosage: UNK
     Dates: start: 20230712
  8. LORAZEPAM [Concomitant]
     Active Substance: LORAZEPAM
     Indication: Depression
     Dosage: UNK
     Dates: start: 20230712
  9. THIAMINE [Concomitant]
     Active Substance: THIAMINE
     Indication: Hepatic cirrhosis
     Dosage: UNK
     Dates: start: 20230712
  10. BANAN [Concomitant]
     Active Substance: CEFPODOXIME PROXETIL
     Dosage: UNK
     Dates: start: 20230717, end: 20230731
  11. BIOFLOR [Concomitant]
     Dosage: UNK
     Dates: start: 20230717, end: 20230731

REACTIONS (6)
  - Haemolytic anaemia [Not Recovered/Not Resolved]
  - Nasopharyngitis [Recovering/Resolving]
  - Vomiting [Recovered/Resolved]
  - Diarrhoea [Recovered/Resolved]
  - Asthenia [Recovered/Resolved]
  - Blood bilirubin increased [Recovering/Resolving]

NARRATIVE: CASE EVENT DATE: 20230830
